FAERS Safety Report 8621691 (Version 3)
Quarter: 2013Q4

REPORT INFORMATION
  Report Type: Spontaneous
  Country: CA (occurrence: CA)
  Receive Date: 20120531
  Receipt Date: 20131031
  Transmission Date: 20140711
  Serious: Yes (Death, Hospitalization)
  Sender: FDA-Public Use
  Company Number: CA-009507513-2012SP028673

PATIENT
  Age: 48 Year
  Sex: Female
  Weight: 89.8 kg

DRUGS (7)
  1. VICTRELIS [Suspect]
     Indication: HEPATITIS C
  2. PEGETRON [Suspect]
     Indication: HEPATITIS C
     Dosage: 150 MICROGRAM, UNK
     Dates: start: 20120201, end: 20120419
  3. RIBAVIRIN [Suspect]
     Indication: HEPATITIS C
     Dosage: 1200 MG, UNK
     Dates: start: 20120201, end: 20120419
  4. RIBAVIRIN [Suspect]
     Dosage: 600 MG, UNK
  5. EPREX [Concomitant]
     Indication: ANAEMIA
     Dosage: 40000 IU, QW
     Route: 060
     Dates: start: 20120229
  6. ALDACTONE TABLETS [Suspect]
     Indication: OEDEMA PERIPHERAL
  7. METHADONE HYDROCHLORIDE [Concomitant]
     Dosage: 25 MG, QD

REACTIONS (4)
  - Pulmonary fibrosis [Fatal]
  - Lung disorder [Fatal]
  - Oxygen saturation decreased [Unknown]
  - Pyrexia [Unknown]
